FAERS Safety Report 10027648 (Version 1)
Quarter: 2014Q1

REPORT INFORMATION
  Report Type: Spontaneous
  Country: US (occurrence: None)
  Receive Date: 20140318
  Receipt Date: 20140318
  Transmission Date: 20141002
  Serious: Yes (Other)
  Sender: FDA-Public Use
  Company Number: 152808

PATIENT
  Age: 3 Month
  Sex: Male

DRUGS (2)
  1. CARBOPLATIN [Suspect]
     Indication: ATYPICAL TERATOID/RHABDOID TUMOUR OF CNS
     Dosage: DAY FOR 2 DAYS ON DAY-3 AND 2 PRIOR TO AUTOLOGOUS STEM CELL TRANSPLANTATION ON DAY 0
  2. THIOTEPA [Suspect]
     Dosage: DAY FOR 2 DAYS ON DAY 3 AND 2 PRIO

REACTIONS (6)
  - Pulmonary vasculitis [None]
  - Pulmonary arterial hypertension [None]
  - Stem cell transplant [None]
  - Tachypnoea [None]
  - Oxygen saturation decreased [None]
  - Cardiomegaly [None]
